FAERS Safety Report 9867419 (Version 1)
Quarter: 2014Q1

REPORT INFORMATION
  Report Type: Report from Study
  Country: CA (occurrence: CA)
  Receive Date: 20140204
  Receipt Date: 20140204
  Transmission Date: 20141002
  Serious: Yes (Other)
  Sender: FDA-Public Use
  Company Number: CA-JNJFOC-20140118836

PATIENT
  Age: 73 Year
  Sex: Male
  Weight: 91.9 kg

DRUGS (3)
  1. REMICADE [Suspect]
     Indication: COLITIS ULCERATIVE
     Route: 042
     Dates: start: 20131202
  2. REMICADE [Suspect]
     Indication: COLITIS ULCERATIVE
     Dosage: AT WEEK 0, 2 AND 6
     Route: 042
     Dates: start: 20140128
  3. REMICADE [Suspect]
     Indication: COLITIS ULCERATIVE
     Route: 042
     Dates: start: 20131021

REACTIONS (1)
  - Diarrhoea [Unknown]
